FAERS Safety Report 24422794 (Version 2)
Quarter: 2024Q4

REPORT INFORMATION
  Report Type: Spontaneous
  Country: FR (occurrence: FR)
  Receive Date: 20241010
  Receipt Date: 20241014
  Transmission Date: 20250115
  Serious: Yes (Death, Other)
  Sender: CELLTRION
  Company Number: FR-BRISTOL-MYERS SQUIBB COMPANY-2024-051470

PATIENT

DRUGS (2)
  1. RITUXIMAB [Suspect]
     Active Substance: RITUXIMAB
     Indication: Diffuse large B-cell lymphoma
     Dosage: UNK
     Route: 065
     Dates: start: 202211
  2. LENALIDOMIDE [Suspect]
     Active Substance: LENALIDOMIDE
     Indication: Diffuse large B-cell lymphoma
     Dosage: UNK
     Route: 065
     Dates: start: 202211

REACTIONS (5)
  - Cardio-respiratory arrest [Fatal]
  - Spinal cord neoplasm [Fatal]
  - Epilepsy [Unknown]
  - Off label use [Unknown]
  - Product use issue [Unknown]
